FAERS Safety Report 23217468 (Version 1)
Quarter: 2023Q4

REPORT INFORMATION
  Report Type: Spontaneous
  Country: US (occurrence: US)
  Receive Date: 20231122
  Receipt Date: 20231122
  Transmission Date: 20240110
  Serious: No
  Sender: FDA-Public Use
  Company Number: US-SA-SAC20231116000509

PATIENT
  Age: 5 Year
  Sex: Female

DRUGS (2)
  1. DUPIXENT [Suspect]
     Active Substance: DUPILUMAB
     Indication: Dermatitis allergic
     Dosage: DOSAGE; 300 MG/2ML: INJECT 2 ML EVERY 28 DAYS
     Route: 058
  2. VITAMINS [Concomitant]
     Active Substance: VITAMINS
     Dosage: UNK

REACTIONS (10)
  - Discomfort [Unknown]
  - Sleep disorder [Unknown]
  - Impaired quality of life [Unknown]
  - Dry skin [Unknown]
  - Periorbital swelling [Unknown]
  - Skin fissures [Unknown]
  - Periorbital irritation [Unknown]
  - Asthma [Unknown]
  - Swelling of eyelid [Unknown]
  - Rash [Unknown]

NARRATIVE: CASE EVENT DATE: 20230101
